FAERS Safety Report 14113786 (Version 1)
Quarter: 2017Q4

REPORT INFORMATION
  Report Type: Spontaneous
  Country: NO (occurrence: NO)
  Receive Date: 20171023
  Receipt Date: 20171023
  Transmission Date: 20180321
  Serious: Yes (Hospitalization, Other)
  Sender: FDA-Public Use
  Company Number: NO-JNJFOC-20171018435

PATIENT
  Age: 62 Year
  Sex: Male

DRUGS (5)
  1. METOPROLOL TARTRATE. [Concomitant]
     Active Substance: METOPROLOL TARTRATE
     Route: 065
  2. COAPROVEL [Concomitant]
     Active Substance: HYDROCHLOROTHIAZIDE\IRBESARTAN
     Route: 065
  3. XARELTO [Suspect]
     Active Substance: RIVAROXABAN
     Indication: CEREBRAL INFARCTION
     Route: 048
     Dates: start: 20140922, end: 20140926
  4. PLENDIL [Concomitant]
     Active Substance: FELODIPINE
     Route: 065
  5. LIPITOR [Suspect]
     Active Substance: ATORVASTATIN CALCIUM
     Indication: PRODUCT USED FOR UNKNOWN INDICATION
     Route: 065

REACTIONS (15)
  - Hypoaesthesia [Unknown]
  - Anxiety [Unknown]
  - Cerebral infarction [Unknown]
  - Quality of life decreased [Unknown]
  - Communication disorder [Unknown]
  - Depression [Unknown]
  - Memory impairment [Unknown]
  - Clumsiness [Unknown]
  - Asthenia [Unknown]
  - Dysphagia [Unknown]
  - Balance disorder [Unknown]
  - Mood swings [Unknown]
  - Mental disorder [Unknown]
  - Drug ineffective [Unknown]
  - Disturbance in attention [Unknown]

NARRATIVE: CASE EVENT DATE: 20140924
